FAERS Safety Report 15813776 (Version 4)
Quarter: 2019Q2

REPORT INFORMATION
  Report Type: Report from Study
  Country: US (occurrence: US)
  Receive Date: 20190111
  Receipt Date: 20190402
  Transmission Date: 20190711
  Serious: Yes (Other)
  Sender: FDA-Public Use
  Company Number: US-PFIZER INC-2019014658

PATIENT
  Age: 69 Year
  Sex: Male

DRUGS (1)
  1. SUTENT [Suspect]
     Active Substance: SUNITINIB MALATE
     Indication: PANCREATIC NEUROENDOCRINE TUMOUR METASTATIC
     Dosage: 37.5 MG, DAILY
     Route: 048
     Dates: start: 20181212

REACTIONS (9)
  - Palmar-plantar erythrodysaesthesia syndrome [Unknown]
  - Tooth abscess [Unknown]
  - Neoplasm progression [Unknown]
  - Diarrhoea [Unknown]
  - Tumour marker increased [Unknown]
  - Stomatitis [Unknown]
  - Mouth haemorrhage [Unknown]
  - Pain in extremity [Unknown]
  - Taste disorder [Unknown]
